FAERS Safety Report 8540935-1 (Version None)
Quarter: 2012Q3

REPORT INFORMATION
  Report Type: 
  Country: None (occurrence: None)
  Receive Date: 20120726
  Receipt Date: 20110922
  Transmission Date: 20120928
  Serious: No
  Sender: FDA-Public Use
  Company Number: US-ASTRAZENECA-2011SE48483

PATIENT
  Age: 53 Year
  Sex: Female

DRUGS (2)
  1. SEROQUEL [Suspect]
     Indication: DEPRESSION
     Route: 048
  2. SEROQUEL [Suspect]
     Indication: BIPOLAR DISORDER
     Route: 048

REACTIONS (7)
  - INCREASED APPETITE [None]
  - SOMNOLENCE [None]
  - DRUG DOSE OMISSION [None]
  - FEELING ABNORMAL [None]
  - INSOMNIA [None]
  - VERTIGO [None]
  - WEIGHT INCREASED [None]
